FAERS Safety Report 12178496 (Version 2)
Quarter: 2016Q2

REPORT INFORMATION
  Report Type: Spontaneous
  Country: US (occurrence: US)
  Receive Date: 20160314
  Receipt Date: 20160607
  Transmission Date: 20160815
  Serious: No
  Sender: FDA-Public Use
  Company Number: US-SA-2015SA221876

PATIENT
  Age: 53 Year
  Sex: Female

DRUGS (17)
  1. SOLOSTAR [Concomitant]
     Active Substance: DEVICE
     Indication: TYPE 2 DIABETES MELLITUS
     Dates: start: 20150921, end: 20151221
  2. ALLERGY RELIEF [Concomitant]
     Dosage: STRENGTH: 25MG
  3. LEVEMIR [Concomitant]
     Active Substance: INSULIN DETEMIR
     Dosage: STRENGTH: 100 UNIT/M DOSE:26 UNIT(S)
  4. TRAMADOL HYDROCHLORIDE. [Concomitant]
     Active Substance: TRAMADOL HYDROCHLORIDE
     Dosage: STRENGTH: 50 MG?AS NEEDED
     Route: 048
  5. FLEXERIL [Concomitant]
     Active Substance: CYCLOBENZAPRINE HYDROCHLORIDE
     Dosage: STRENGTH: 5MG?AS NEEDED
     Route: 048
  6. HUMALOG [Concomitant]
     Active Substance: INSULIN LISPRO
     Dosage: STRENGTH: 100 UNIT/M ?SLIDING SCALE- MODERATE DOSE FOUR TIMES A DAY
  7. PROAIR HFA [Concomitant]
     Active Substance: ALBUTEROL SULFATE
     Dosage: 2 PUFFS QID AND PRN
  8. VITAMIN D3 [Concomitant]
     Active Substance: CHOLECALCIFEROL
     Dosage: STRENGTH: 5000 UNIT
     Route: 048
  9. GLYBURIDE. [Concomitant]
     Active Substance: GLYBURIDE
  10. FLEXPEN [Concomitant]
     Active Substance: UNSPECIFIED INGREDIENT
  11. VENTOLIN HFA [Concomitant]
     Active Substance: ALBUTEROL SULFATE
     Dosage: 2 PUFFS QID AND PRN
  12. TOUJEO [Suspect]
     Active Substance: INSULIN GLARGINE
     Indication: TYPE 2 DIABETES MELLITUS
     Dosage: DOSE:33 UNIT(S)
     Route: 065
     Dates: start: 20150921, end: 20151221
  13. GLIPIZIDE. [Concomitant]
     Active Substance: GLIPIZIDE
     Dosage: STRENGTH: 10MG
     Route: 048
  14. LEVOTHYROXINE SODIUM. [Concomitant]
     Active Substance: LEVOTHYROXINE SODIUM
     Dosage: STRENGTH: 100MCG?EVERY MORNING
     Route: 048
  15. NOVOLOG [Concomitant]
     Active Substance: INSULIN ASPART
     Dosage: STRENGTH: 100 UNIT/M?MODERATE DOSE SLIDING SCALE TID
  16. FLEXTOUCH [Concomitant]
     Active Substance: DEVICE
  17. METFORMIN HYDROCHLORIDE. [Concomitant]
     Active Substance: METFORMIN HYDROCHLORIDE
     Route: 048

REACTIONS (1)
  - Oedema [Recovered/Resolved]

NARRATIVE: CASE EVENT DATE: 20151221
